FAERS Safety Report 7310920-6 (Version None)
Quarter: 2011Q1

REPORT INFORMATION
  Report Type: 
  Country: None (occurrence: None)
  Receive Date: 20110224
  Receipt Date: 20110218
  Transmission Date: 20110831
  Serious: Yes (Other)
  Sender: FDA-Public Use
  Company Number: GB-BAXTER-2011BH004049

PATIENT
  Age: 4 Year
  Sex: Male

DRUGS (8)
  1. DOXORUBICIN [Suspect]
     Indication: RHABDOMYOSARCOMA
     Route: 042
  2. CISPLATIN [Suspect]
     Indication: RHABDOMYOSARCOMA
  3. IFOSFAMIDE [Suspect]
     Indication: RHABDOMYOSARCOMA
     Dosage: DOSE UNIT:GRAMS PER METERS SQUARED
     Route: 065
  4. ACTINOMYCIN D [Suspect]
     Indication: RHABDOMYOSARCOMA
     Route: 042
  5. CYCLOPHOSPHAMIDE [Suspect]
     Indication: RHABDOMYOSARCOMA
  6. ETOPOSIDE [Suspect]
     Indication: RHABDOMYOSARCOMA
     Route: 042
  7. RADIATION [Suspect]
     Indication: RHABDOMYOSARCOMA
  8. VINCRISTINE [Suspect]
     Indication: RHABDOMYOSARCOMA
     Route: 042

REACTIONS (2)
  - FANCONI SYNDROME [None]
  - NEPHROPATHY TOXIC [None]
